FAERS Safety Report 12290641 (Version 4)
Quarter: 2016Q2

REPORT INFORMATION
  Report Type: Report from Study
  Country: US (occurrence: US)
  Receive Date: 20160421
  Receipt Date: 20160607
  Transmission Date: 20160815
  Serious: Yes (Other)
  Sender: FDA-Public Use
  Company Number: US-MDT-ADR-2016-00726

PATIENT
  Age: 44 Year
  Sex: Female

DRUGS (8)
  1. COMPOUNDED BACLOFEN [Suspect]
     Active Substance: BACLOFEN
     Dosage: 133.48 MCG/DAY
     Route: 037
  2. BUPIVACAINE. [Suspect]
     Active Substance: BUPIVACAINE
     Dosage: 7.475 MG/DAY
     Route: 037
  3. DILAUDID [Suspect]
     Active Substance: HYDROMORPHONE HYDROCHLORIDE
     Dosage: 1.7607 MG/DAY
     Route: 037
     Dates: start: 20160310
  4. BUPIVACAINE. [Suspect]
     Active Substance: BUPIVACAINE
     Dosage: 8.217 MG/DAY
     Route: 037
     Dates: start: 20160310
  5. DILAUDID [Suspect]
     Active Substance: HYDROMORPHONE HYDROCHLORIDE
     Dosage: 1.6018 MG/DAY
     Route: 037
  6. CLONIDINE. [Suspect]
     Active Substance: CLONIDINE
     Dosage: 74.75 MCG/DAY
     Route: 037
  7. BACLOFEN. [Suspect]
     Active Substance: BACLOFEN
     Dosage: 146.72 MCG/DAY
     Route: 037
     Dates: start: 20160310
  8. CLONIDINE. [Suspect]
     Active Substance: CLONIDINE
     Dosage: 82.17 MCG/DAY
     Route: 037
     Dates: start: 20160310

REACTIONS (3)
  - Intervertebral disc degeneration [Unknown]
  - Infusion site mass [Unknown]
  - Hypoaesthesia [Unknown]

NARRATIVE: CASE EVENT DATE: 20151208
